FAERS Safety Report 10652574 (Version 1)
Quarter: 2014Q4

REPORT INFORMATION
  Report Type: Spontaneous
  Country: GB (occurrence: GB)
  Receive Date: 20141215
  Receipt Date: 20141215
  Transmission Date: 20150529
  Serious: Yes (Death)
  Sender: FDA-Public Use
  Company Number: GB-GALEN LIMITED-AE-2014/0808

PATIENT
  Sex: Male

DRUGS (4)
  1. HAART [Concomitant]
     Route: 048
  2. VINCRISTINE [Concomitant]
     Active Substance: VINCRISTINE
     Dates: start: 19980511, end: 19980624
  3. DAUNOXOME [Suspect]
     Active Substance: DAUNORUBICIN CITRATE
     Indication: KAPOSI^S SARCOMA AIDS RELATED
     Dates: start: 1998
  4. BLEOMYCIN [Concomitant]
     Active Substance: BLEOMYCIN SULFATE
     Dates: start: 19980511, end: 19980624

REACTIONS (1)
  - Non-Hodgkin^s lymphoma [Fatal]
